FAERS Safety Report 16001622 (Version 1)
Quarter: 2019Q1

REPORT INFORMATION
  Report Type: Spontaneous
  Country: US (occurrence: US)
  Receive Date: 20190225
  Receipt Date: 20190225
  Transmission Date: 20190418
  Serious: No
  Sender: FDA-Public Use
  Company Number: US-ALLERGAN-1830322US

PATIENT
  Age: 76 Year
  Sex: Female

DRUGS (1)
  1. HYDROCODONE BITARTRATE;ACETAMINOPHEN UNK [Suspect]
     Active Substance: ACETAMINOPHEN\HYDROCODONE BITARTRATE
     Indication: PAIN
     Dosage: 10/325MG
     Route: 065
     Dates: start: 2013, end: 201804

REACTIONS (3)
  - Withdrawal syndrome [Unknown]
  - Product dose omission [Unknown]
  - Pain [Unknown]

NARRATIVE: CASE EVENT DATE: 201804
